FAERS Safety Report 23997211 (Version 1)
Quarter: 2024Q2

REPORT INFORMATION
  Report Type: Other
  Country: US (occurrence: US)
  Receive Date: 20240621
  Receipt Date: 20240621
  Transmission Date: 20240716
  Serious: Yes (Other)
  Sender: FDA-Public Use
  Company Number: US-INTERCEPT-PM2024001239

PATIENT
  Sex: Female

DRUGS (1)
  1. OCALIVA [Suspect]
     Active Substance: OBETICHOLIC ACID
     Indication: Primary biliary cholangitis
     Dosage: 5 MILLIGRAM, QD
     Route: 048
     Dates: start: 20240220

REACTIONS (4)
  - Pharyngeal haemorrhage [Unknown]
  - Laboratory test abnormal [Not Recovered/Not Resolved]
  - Headache [Unknown]
  - Abdominal pain upper [Unknown]

NARRATIVE: CASE EVENT DATE: 20240101
